FAERS Safety Report 5406698-3 (Version None)
Quarter: 2007Q3

REPORT INFORMATION
  Report Type: 
  Country: None (occurrence: None)
  Receive Date: 20070803
  Receipt Date: 20070803
  Transmission Date: 20080115
  Serious: Yes (Hospitalization)
  Sender: FDA-Public Use
  Company Number: None

PATIENT
  Sex: Female
  Weight: 60.81 kg

DRUGS (5)
  1. TOPOTECAN [Suspect]
     Dosage: 15.9 MG
  2. COUMADIN [Concomitant]
  3. FENTANYL [Concomitant]
  4. MS CONTIN [Concomitant]
  5. PERCOCET [Concomitant]

REACTIONS (9)
  - ABDOMINAL PAIN [None]
  - CHILLS [None]
  - CONSTIPATION [None]
  - HYDRONEPHROSIS [None]
  - NAUSEA [None]
  - PAIN [None]
  - PYELONEPHRITIS [None]
  - PYREXIA [None]
  - VOMITING [None]
